FAERS Safety Report 12245875 (Version 1)
Quarter: 2016Q2

REPORT INFORMATION
  Report Type: Spontaneous
  Country: CL (occurrence: CL)
  Receive Date: 20160407
  Receipt Date: 20160407
  Transmission Date: 20160815
  Serious: Yes (Other)
  Sender: FDA-Public Use
  Company Number: CL-ALLERGAN-1652835US

PATIENT
  Age: 11 Year
  Sex: Female

DRUGS (1)
  1. DECAPEPTYL (ACETATE) [Suspect]
     Active Substance: TRIPTORELIN ACETATE
     Indication: PRECOCIOUS PUBERTY
     Dosage: UNK
     Route: 030
     Dates: start: 20160329

REACTIONS (3)
  - Rash [Recovered/Resolved]
  - Eyelid oedema [Recovered/Resolved]
  - Respiratory distress [Recovered/Resolved with Sequelae]

NARRATIVE: CASE EVENT DATE: 20160329
